FAERS Safety Report 16394002 (Version 1)
Quarter: 2019Q2

REPORT INFORMATION
  Report Type: Spontaneous
  Country: US (occurrence: US)
  Receive Date: 20190605
  Receipt Date: 20190605
  Transmission Date: 20190711
  Serious: Yes (Other)
  Sender: FDA-Public Use
  Company Number: US-PFIZER INC-2019234167

PATIENT
  Age: 58 Year
  Sex: Female

DRUGS (4)
  1. PRISTIQ EXTENDED-RELEASE [Suspect]
     Active Substance: DESVENLAFAXINE SUCCINATE
     Indication: DEPRESSION
     Dosage: 100 MG, DAILY
  2. PRISTIQ EXTENDED-RELEASE [Suspect]
     Active Substance: DESVENLAFAXINE SUCCINATE
     Dosage: 75 MG, DAILY
  3. DESVENLAFAXINE SUCCINATE MONOHYDRATE [Suspect]
     Active Substance: DESVENLAFAXINE SUCCINATE
     Dosage: 75 MG, DAILY (ONE 25 MG TABLET AND ONE 50 MG TABLET DAILY)
     Route: 048
     Dates: start: 20190212, end: 20190322
  4. PREMARIN [Suspect]
     Active Substance: ESTROGENS, CONJUGATED
     Dosage: 0.25 G, UNK
     Route: 067

REACTIONS (5)
  - Pain in jaw [Unknown]
  - Breast implant-associated anaplastic large cell lymphoma [Unknown]
  - Hydrothorax [Unknown]
  - Anxiety [Unknown]
  - Chest pain [Unknown]
